FAERS Safety Report 8616636-8 (Version None)
Quarter: 2012Q3

REPORT INFORMATION
  Report Type: 
  Country: None (occurrence: None)
  Receive Date: 20120823
  Receipt Date: 20120802
  Transmission Date: 20120928
  Serious: No
  Sender: FDA-Public Use
  Company Number: US-009507513-1208USA001931

PATIENT

DRUGS (3)
  1. PEG-INTRON [Suspect]
     Indication: HEPATITIS C
     Dosage: 80 MICROGRAM, UNK
  2. VICTRELIS [Suspect]
     Indication: HEPATITIS C
     Dosage: 200MG, 4 DF, TID
     Route: 048
     Dates: start: 20120608
  3. RIBASPHERE [Concomitant]
     Indication: HEPATITIS C

REACTIONS (2)
  - ASTHENIA [None]
  - SOMNOLENCE [None]
